FAERS Safety Report 5459394-0 (Version None)
Quarter: 2007Q3

REPORT INFORMATION
  Report Type: 
  Country: None (occurrence: None)
  Receive Date: 20070919
  Receipt Date: 20070911
  Transmission Date: 20080115
  Serious: No
  Sender: FDA-Public Use
  Company Number: US-ELI_LILLY_AND_COMPANY-US200708003323

PATIENT
  Age: 67 Year
  Sex: Female
  Weight: 68.027 kg

DRUGS (3)
  1. EFUDEX [Concomitant]
     Route: 061
  2. RETIN-A [Concomitant]
     Dosage: 0.025 %, UNK
     Route: 061
  3. FORTEO [Suspect]
     Indication: OSTEOPOROSIS
     Dosage: 20 UG, DAILY (1/D)
     Dates: start: 20061219, end: 20070801

REACTIONS (5)
  - ACTINIC KERATOSIS [None]
  - DERMATITIS CONTACT [None]
  - EPHELIDES [None]
  - RASH PAPULAR [None]
  - SQUAMOUS CELL CARCINOMA OF SKIN [None]
